FAERS Safety Report 8257491-8 (Version None)
Quarter: 2012Q2

REPORT INFORMATION
  Report Type: 
  Country: None (occurrence: None)
  Receive Date: 20120403
  Receipt Date: 20120307
  Transmission Date: 20120825
  Serious: No
  Sender: FDA-Public Use
  Company Number: PHHY2012JP022024

PATIENT
  Sex: Female

DRUGS (1)
  1. NEORAL [Suspect]
     Indication: BEHCET'S SYNDROME
     Dosage: UNK UKN, UNK
     Route: 048

REACTIONS (1)
  - STOMATITIS [None]
